FAERS Safety Report 20844132 (Version 3)
Quarter: 2023Q1

REPORT INFORMATION
  Report Type: Report from Study
  Country: CA (occurrence: CA)
  Receive Date: 20220518
  Receipt Date: 20230201
  Transmission Date: 20230418
  Serious: Yes (Other)
  Sender: FDA-Public Use
  Company Number: CA-JNJFOC-20220520340

PATIENT
  Age: 9 Decade
  Sex: Female
  Weight: 75 kg

DRUGS (3)
  1. REMICADE [Suspect]
     Active Substance: INFLIXIMAB
     Indication: Rheumatoid arthritis
     Dosage: THE PATIENT WAS INFUSED ON 09-AUG-2022
     Route: 042
  2. REMICADE [Suspect]
     Active Substance: INFLIXIMAB
     Route: 042
  3. RISEDRONATE SODIUM [Suspect]
     Active Substance: RISEDRONATE SODIUM
     Indication: Bone density decreased
     Route: 048
     Dates: start: 20220501

REACTIONS (11)
  - Bone density decreased [Not Recovered/Not Resolved]
  - Joint swelling [Unknown]
  - Nodule [Unknown]
  - Tinnitus [Not Recovered/Not Resolved]
  - Sinus disorder [Not Recovered/Not Resolved]
  - Drug ineffective [Unknown]
  - Depressed mood [Not Recovered/Not Resolved]
  - Muscular weakness [Unknown]
  - Discomfort [Unknown]
  - Myalgia [Unknown]
  - Dizziness [Unknown]

NARRATIVE: CASE EVENT DATE: 20220101
